FAERS Safety Report 4348894-2 (Version None)
Quarter: 2004Q2

REPORT INFORMATION
  Report Type: 
  Country: None (occurrence: None)
  Receive Date: 20040423
  Receipt Date: 20040412
  Transmission Date: 20050107
  Serious: Yes (Hospitalization)
  Sender: FDA-Public Use
  Company Number: 204153

PATIENT
  Age: 70 Year
  Sex: Female

DRUGS (10)
  1. HERCEPTIN [Suspect]
     Indication: BREAST CANCER
     Dosage: SEE IMAGE
     Route: 042
     Dates: start: 20031218, end: 20031218
  2. HERCEPTIN [Suspect]
     Indication: BREAST CANCER
     Dosage: SEE IMAGE
     Route: 042
     Dates: start: 20031224
  3. DOCETAXEL (DOCETAXEL) [Suspect]
     Indication: BREAST CANCER
     Dosage: 170 MG, Q3W, INTRAVENOUS
     Route: 042
     Dates: start: 20031219
  4. ZOCOR [Concomitant]
  5. LOSEC (OMEPRAZOLE) [Concomitant]
  6. CALTRATE (CALCIUM CARBONATE) [Concomitant]
  7. FOSAMAX [Concomitant]
  8. SERC [Concomitant]
  9. OXAZEPAM [Concomitant]
  10. DEXAMETHASONE [Concomitant]

REACTIONS (1)
  - FEBRILE NEUTROPENIA [None]
